FAERS Safety Report 25066216 (Version 1)
Quarter: 2025Q1

REPORT INFORMATION
  Report Type: Spontaneous
  Country: JP (occurrence: JP)
  Receive Date: 20250312
  Receipt Date: 20250312
  Transmission Date: 20250409
  Serious: Yes (Hospitalization, Other)
  Sender: AVYXA HOLDINGS, LLC
  Company Number: JP-AVYXA HOLDINGS, LLC-2025AVY000014

PATIENT
  Sex: Male

DRUGS (3)
  1. PEMETREXED [Suspect]
     Active Substance: PEMETREXED
     Indication: Lung adenocarcinoma
     Route: 065
  2. CISPLATIN [Suspect]
     Active Substance: CISPLATIN
     Indication: Lung adenocarcinoma
     Route: 065
  3. NIVOLUMAB [Suspect]
     Active Substance: NIVOLUMAB
     Indication: Lung adenocarcinoma
     Route: 065

REACTIONS (5)
  - Adrenal insufficiency [Not Recovered/Not Resolved]
  - Cardiogenic shock [Unknown]
  - Hypopituitarism [Not Recovered/Not Resolved]
  - Stress cardiomyopathy [Unknown]
  - Product use in unapproved indication [Unknown]
